FAERS Safety Report 12196805 (Version 3)
Quarter: 2016Q3

REPORT INFORMATION
  Report Type: Report from Study
  Country: CO (occurrence: CO)
  Receive Date: 20160321
  Receipt Date: 20160802
  Transmission Date: 20161109
  Serious: Yes (Hospitalization, Other)
  Sender: FDA-Public Use
  Company Number: PHHY2015CO082720

PATIENT
  Age: 27 Year
  Sex: Female
  Weight: 81 kg

DRUGS (3)
  1. LEVOTHYROXINE. [Concomitant]
     Active Substance: LEVOTHYROXINE
     Indication: THYROID DISORDER
     Dosage: 75 MG, QD, FASTING
     Route: 065
  2. INTERFERON ALFA-2B [Concomitant]
     Active Substance: INTERFERON ALFA-2B
     Indication: LEUKAEMIA RECURRENT PROPHYLAXIS
     Dosage: 2.5 IU, QW3 (MONDAY, WEDNESDAY AND FRIDAY)
     Route: 065
     Dates: start: 201506, end: 201510
  3. GLIVEC [Suspect]
     Active Substance: IMATINIB MESYLATE
     Indication: CHRONIC MYELOID LEUKAEMIA
     Dosage: 400 MG, QD
     Route: 065

REACTIONS (10)
  - Pyrexia [Unknown]
  - Diarrhoea [Unknown]
  - White blood cell count increased [Unknown]
  - Chronic myeloid leukaemia [Unknown]
  - Platelet count increased [Unknown]
  - Vomiting [Unknown]
  - Premature delivery [Unknown]
  - Pregnancy on contraceptive [Unknown]
  - Maternal exposure during pregnancy [Unknown]
  - Malignant neoplasm progression [Unknown]

NARRATIVE: CASE EVENT DATE: 20151008
